FAERS Safety Report 9495604 (Version 2)
Quarter: 2014Q2

REPORT INFORMATION
  Report Type: Spontaneous
  Country: US (occurrence: US)
  Receive Date: 20130903
  Receipt Date: 20140520
  Transmission Date: 20141212
  Serious: Yes (Hospitalization)
  Sender: FDA-Public Use
  Company Number: US-BAYER-2013-105581

PATIENT
  Age: 26 Year
  Sex: Female
  Weight: 90.7 kg

DRUGS (2)
  1. MIRENA [Suspect]
     Indication: CONTRACEPTION
     Dosage: 20 MCG/24HR, CONT
     Route: 015
     Dates: start: 20110414, end: 20120612
  2. ZOLOFT [Concomitant]

REACTIONS (7)
  - Device dislocation [None]
  - Medical device pain [None]
  - Infection [None]
  - Injury [None]
  - Device dislocation [None]
  - Uterine perforation [None]
  - Anxiety [None]
